FAERS Safety Report 23069456 (Version 1)
Quarter: 2023Q4

REPORT INFORMATION
  Report Type: Spontaneous
  Country: DE (occurrence: DE)
  Receive Date: 20231016
  Receipt Date: 20231016
  Transmission Date: 20240110
  Serious: Yes (Hospitalization)
  Sender: FDA-Public Use
  Company Number: DE-AMGEN-DEUSP2023169674

PATIENT
  Age: 26 Year
  Sex: Male
  Weight: 90 kg

DRUGS (11)
  1. PEGFILGRASTIM [Suspect]
     Active Substance: PEGFILGRASTIM
     Indication: Product used for unknown indication
     Dosage: UNK
     Route: 065
  2. DACARBAZINE [Concomitant]
     Active Substance: DACARBAZINE
     Dosage: UNK
     Route: 065
  3. BLEOMYCIN SULFATE [Concomitant]
     Active Substance: BLEOMYCIN SULFATE
     Dosage: 10 MILLIGRAM/SQ. METER BSA (BODY SURFACE AREA)
     Route: 065
     Dates: start: 20181106, end: 20181106
  4. PROCARBAZINE [Concomitant]
     Active Substance: PROCARBAZINE
     Dosage: 100 MILLIGRAM/SQ. METER BSA (BODY SURFACE AREA)
     Route: 065
     Dates: start: 20181030, end: 20181105
  5. DEXAMETHASONE [Concomitant]
     Active Substance: DEXAMETHASONE
     Dosage: UNK
     Route: 065
  6. CYCLOPHOSPHAMIDE [Concomitant]
     Active Substance: CYCLOPHOSPHAMIDE
     Dosage: 1250 MILLIGRAM/SQ. METER BSA (BODY SURFACE AREA)
     Route: 065
     Dates: start: 20181030, end: 20181030
  7. ETOPOSIDE [Concomitant]
     Active Substance: ETOPOSIDE
     Dosage: 200 MILLIGRAM/SQ. METER BSA (BODY SURFACE AREA)
     Route: 065
     Dates: start: 20181030, end: 20181101
  8. PREDNISONE [Concomitant]
     Active Substance: PREDNISONE
     Dosage: 40 MILLIGRAM/SQ. METER BSA (BODY SURFACE AREA)
     Route: 065
     Dates: start: 20181030, end: 20181109
  9. BRENTUXIMAB VEDOTIN [Concomitant]
     Active Substance: BRENTUXIMAB VEDOTIN
     Dosage: UNK
     Route: 065
  10. VINCRISTINE [Concomitant]
     Active Substance: VINCRISTINE
     Dosage: 14 MILLIGRAM/SQ. METER BSA (BODY SURFACE AREA)
     Route: 065
     Dates: start: 20181106, end: 20181106
  11. DOXORUBICIN [Concomitant]
     Active Substance: DOXORUBICIN
     Dosage: 35 MILLIGRAM/SQ. METER BSA (BODY SURFACE AREA)
     Route: 065
     Dates: start: 20181030, end: 20181030

REACTIONS (1)
  - Back pain [Recovered/Resolved]

NARRATIVE: CASE EVENT DATE: 20181110
